FAERS Safety Report 24828115 (Version 1)
Quarter: 2025Q1

REPORT INFORMATION
  Report Type: Spontaneous
  Country: US (occurrence: US)
  Receive Date: 20250109
  Receipt Date: 20250109
  Transmission Date: 20250409
  Serious: Yes (Hospitalization, Other)
  Sender: JOHNSON AND JOHNSON
  Company Number: US-JNJFOC-20241277222

PATIENT
  Sex: Male

DRUGS (7)
  1. INVEGA [Suspect]
     Active Substance: PALIPERIDONE
     Indication: Product used for unknown indication
     Route: 048
  2. HALOPERIDOL [Suspect]
     Active Substance: HALOPERIDOL
     Indication: Product used for unknown indication
     Route: 065
  3. RISPERIDONE [Suspect]
     Active Substance: RISPERIDONE
     Indication: Product used for unknown indication
     Route: 065
  4. INVEGA SUSTENNA [Suspect]
     Active Substance: PALIPERIDONE PALMITATE
     Indication: Product used for unknown indication
     Route: 030
  5. INVEGA SUSTENNA [Suspect]
     Active Substance: PALIPERIDONE PALMITATE
  6. INVEGA SUSTENNA [Suspect]
     Active Substance: PALIPERIDONE PALMITATE
  7. ZYPREXA [Concomitant]
     Active Substance: OLANZAPINE

REACTIONS (12)
  - Cholelithiasis [Unknown]
  - Memory impairment [Unknown]
  - Hallucinations, mixed [Unknown]
  - Diabetes mellitus [Unknown]
  - Hepatitis [Unknown]
  - Psychotic disorder [Unknown]
  - Confusional state [Unknown]
  - Somnolence [Unknown]
  - Inappropriate affect [Unknown]
  - Haematuria [Unknown]
  - Weight increased [Unknown]
  - Abnormal behaviour [Unknown]
